FAERS Safety Report 16203347 (Version 1)
Quarter: 2019Q2

REPORT INFORMATION
  Report Type: Spontaneous
  Country: NL (occurrence: FR)
  Receive Date: 20190416
  Receipt Date: 20190416
  Transmission Date: 20190711
  Serious: Yes (Death)
  Sender: FDA-Public Use
  Company Number: FR-FRESENIUS KABI-FK201904130

PATIENT
  Age: 65 Year
  Sex: Female
  Weight: 92 kg

DRUGS (11)
  1. CEFTAZIDIME PENTAHYDRATE [Suspect]
     Active Substance: CEFTAZIDIME
     Indication: SEPTIC SHOCK
     Route: 065
     Dates: start: 20190301, end: 20190302
  2. PROPOFOL. [Suspect]
     Active Substance: PROPOFOL
     Indication: INDUCTION OF ANAESTHESIA
     Route: 042
     Dates: start: 20190228, end: 20190228
  3. VORICONAZOLE. [Suspect]
     Active Substance: VORICONAZOLE
     Indication: ANTIBIOTIC PROPHYLAXIS
     Route: 042
     Dates: start: 20190226, end: 20190306
  4. NEOMYCIN SULFATE/DEXAMETHASONE SODIUM PHOSPHATE [Suspect]
     Active Substance: DEXAMETHASONE SODIUM PHOSPHATE\NEOMYCIN SULFATE
     Indication: PRODUCT USED FOR UNKNOWN INDICATION
     Dosage: 1 DROP PER EYE
     Route: 047
     Dates: start: 20190225, end: 20190227
  5. CYTARABINE. [Suspect]
     Active Substance: CYTARABINE
     Indication: SURGICAL PRECONDITIONING
     Route: 042
     Dates: start: 20190225, end: 20190301
  6. IMIPENEM MONOHYDRATE/CILASTATIN SODIUM [Suspect]
     Active Substance: CILASTATIN SODIUM\IMIPENEM
     Indication: SEPTIC SHOCK
     Route: 042
     Dates: start: 20190302, end: 20190308
  7. CEFTRIAXONE SODIUM. [Suspect]
     Active Substance: CEFTRIAXONE SODIUM
     Indication: UROSEPSIS
     Route: 042
     Dates: start: 20190227, end: 20190227
  8. CLOFARABINE. [Suspect]
     Active Substance: CLOFARABINE
     Indication: BONE MARROW TRANSPLANT
     Route: 042
     Dates: start: 20190225, end: 20190301
  9. APREPITANT. [Suspect]
     Active Substance: APREPITANT
     Indication: BONE MARROW TRANSPLANT
     Dosage: 125 MG D1 THEN 80 MG
     Route: 048
     Dates: start: 20190225, end: 20190227
  10. ONDANSETRON (MANUFACTURER UNKNOWN) [Suspect]
     Active Substance: ONDANSETRON
     Indication: ANTIEMETIC SUPPORTIVE CARE
     Route: 042
     Dates: start: 20190226, end: 20190227
  11. VANCOMYCIN HYDROCHLORIDE. [Suspect]
     Active Substance: VANCOMYCIN HYDROCHLORIDE
     Indication: PRODUCT USED FOR UNKNOWN INDICATION
     Route: 042
     Dates: start: 20190302, end: 20190303

REACTIONS (1)
  - Toxic epidermal necrolysis [Fatal]

NARRATIVE: CASE EVENT DATE: 20190303
